FAERS Safety Report 8604251-1 (Version None)
Quarter: 2012Q3

REPORT INFORMATION
  Report Type: 
  Country: None (occurrence: None)
  Receive Date: 20120807
  Receipt Date: 20120723
  Transmission Date: 20120928
  Serious: Yes (Other)
  Sender: FDA-Public Use
  Company Number: FK201202163

PATIENT

DRUGS (1)
  1. DOXYCYCLINE HYCLATE [Suspect]
     Indication: SCLEROTHERAPY
     Dosage: INTRAVENOUS
     Route: 042

REACTIONS (1)
  - HYPOGLYCAEMIA [None]
